FAERS Safety Report 11566593 (Version 1)
Quarter: 2015Q3

REPORT INFORMATION
  Report Type: Spontaneous
  Country: US (occurrence: US)
  Receive Date: 20150916
  Receipt Date: 20150916
  Transmission Date: 20151125
  Serious: No
  Sender: FDA-Public Use
  Company Number: US-ELI_LILLY_AND_COMPANY-US200906003679

PATIENT
  Age: 81 Year
  Sex: Female

DRUGS (1)
  1. FORTEO [Suspect]
     Active Substance: TERIPARATIDE
     Dosage: 0.02 MG, DAILY (1/D)
     Dates: start: 200906

REACTIONS (3)
  - Flushing [Recovered/Resolved]
  - Dizziness [Recovered/Resolved]
  - Tension [Recovered/Resolved]

NARRATIVE: CASE EVENT DATE: 20090615
